FAERS Safety Report 16331476 (Version 1)
Quarter: 2019Q2

REPORT INFORMATION
  Report Type: Spontaneous
  Country: US (occurrence: US)
  Receive Date: 20190517
  Receipt Date: 20190517
  Transmission Date: 20190711
  Serious: Yes (Other)
  Sender: FDA-Public Use
  Company Number: None

PATIENT
  Age: 32 Year
  Sex: Female
  Weight: 54 kg

DRUGS (1)
  1. 300 MG BUPROPION XL GENERIC FOR WELLBUTR N [Suspect]
     Active Substance: BUPROPION HYDROCHLORIDE
     Indication: DEPRESSION
     Dosage: ?          QUANTITY:1 TABLET(S);?
     Route: 048

REACTIONS (5)
  - Pruritus [None]
  - Rash [None]
  - Mechanical urticaria [None]
  - Urticaria [None]
  - Chest pain [None]

NARRATIVE: CASE EVENT DATE: 20190430
